FAERS Safety Report 15388020 (Version 2)
Quarter: 2023Q2

REPORT INFORMATION
  Report Type: Spontaneous
  Country: DE (occurrence: DE)
  Receive Date: 20180915
  Receipt Date: 20230613
  Transmission Date: 20230721
  Serious: Yes (Congenital Anomaly, Other)
  Sender: FDA-Public Use
  Company Number: DE-AUROBINDO-AUR-APL-2018-045539

PATIENT
  Age: 1 Day
  Sex: Male
  Weight: 4.025 kg

DRUGS (9)
  1. ZOLPIDEM [Suspect]
     Active Substance: ZOLPIDEM TARTRATE
     Indication: Sleep disorder
     Dosage: UNK (10 MG/D (BIS 5))
     Route: 064
     Dates: start: 20170616, end: 20170727
  2. AMITRIPTYLINE [Suspect]
     Active Substance: AMITRIPTYLINE
     Indication: Sleep disorder
     Dosage: 12.5 MILLIGRAM, ONCE A DAY (12.5 MG/D)
     Route: 064
     Dates: start: 20170721, end: 20170731
  3. DOXYLAMINE [Suspect]
     Active Substance: DOXYLAMINE
     Indication: Sleep disorder
     Dosage: UNK (45 [MG/D ]/ 15 - 45 MG/D)
     Route: 064
     Dates: start: 20170731, end: 20180215
  4. ZINC [Concomitant]
     Active Substance: ZINC
     Indication: Herpes zoster
     Dosage: UNK
     Route: 064
     Dates: start: 20180110, end: 20180112
  5. LEVOTHYROXINE SODIUM [Concomitant]
     Active Substance: LEVOTHYROXINE SODIUM
     Indication: Autoimmune thyroiditis
     Dosage: UNK (100 [?G/D (BIS 50) ])
     Route: 064
     Dates: start: 20170618, end: 20180315
  6. Femibion [Concomitant]
     Indication: Prophylaxis of neural tube defect
     Dosage: UNK
     Route: 064
     Dates: start: 20170616, end: 20170731
  7. DRONABINOL [Concomitant]
     Active Substance: DRONABINOL
     Indication: Pain
     Dosage: UNK
     Route: 064
     Dates: start: 20170616, end: 20170719
  8. LEMTRADA [Concomitant]
     Active Substance: ALEMTUZUMAB
     Indication: Multiple sclerosis
     Dosage: UNK
     Route: 064
  9. CRESOL\UREA [Concomitant]
     Active Substance: CRESOL\UREA
     Indication: Herpes zoster
     Dosage: UNK
     Route: 064
     Dates: start: 20180110, end: 20180112

REACTIONS (3)
  - Large for dates baby [Unknown]
  - Ventricular septal defect [Unknown]
  - Foetal exposure during pregnancy [Recovered/Resolved]

NARRATIVE: CASE EVENT DATE: 20180315
